FAERS Safety Report 6000973-X (Version None)
Quarter: 2008Q4

REPORT INFORMATION
  Report Type: 
  Country: None (occurrence: None)
  Receive Date: 20081215
  Receipt Date: 20081202
  Transmission Date: 20090506
  Serious: Yes (Hospitalization)
  Sender: FDA-Public Use
  Company Number: SE-AMGEN-UK312587

PATIENT
  Sex: Male

DRUGS (17)
  1. PANITUMUMAB [Suspect]
     Indication: COLORECTAL CANCER
     Route: 042
     Dates: start: 20080528, end: 20081105
  2. IRINOTECAN HYDROCHLORIDE [Suspect]
     Route: 065
     Dates: start: 20080528
  3. FLUOROURACIL [Concomitant]
     Dates: start: 20080528
  4. LEUCOVORIN CALCIUM [Concomitant]
     Dates: start: 20080528
  5. ACETAMINOPHEN [Concomitant]
     Route: 048
     Dates: start: 20080301
  6. OXAZEPAM [Concomitant]
     Route: 048
     Dates: start: 20080301
  7. LOPERAMIDE HCL [Concomitant]
     Route: 048
     Dates: start: 20080529
  8. MORPHINE [Concomitant]
     Route: 048
     Dates: start: 20080530
  9. ZOPICLONE [Concomitant]
     Route: 048
     Dates: start: 20080910
  10. ALBUTEROL SULFATE [Concomitant]
     Dates: start: 20080821
  11. FUROSEMIDE [Concomitant]
     Route: 048
     Dates: start: 20080821
  12. AMOXICILLIN [Concomitant]
     Route: 048
     Dates: start: 20081004
  13. KALIUMKLORID [Concomitant]
     Route: 048
     Dates: start: 20081008
  14. TROPISETRON [Concomitant]
     Route: 042
  15. BETAMETHASONE [Concomitant]
     Route: 042
  16. ATROPINE [Concomitant]
     Route: 058
  17. DALTEPARIN SODIUM [Concomitant]
     Route: 058
     Dates: start: 20080821, end: 20081016

REACTIONS (1)
  - PULMONARY THROMBOSIS [None]
